FAERS Safety Report 8915250 (Version 1)
Quarter: 2012Q4

REPORT INFORMATION
  Report Type: Report from Study
  Country: CA (occurrence: CA)
  Receive Date: 20121119
  Receipt Date: 20121119
  Transmission Date: 20130627
  Serious: Yes (Hospitalization)
  Sender: FDA-Public Use
  Company Number: CA-ROCHE-1155600

PATIENT
  Sex: Male
  Weight: 99.43 kg

DRUGS (7)
  1. BEVACIZUMAB [Suspect]
     Indication: GLIOBLASTOMA
     Route: 042
  2. DECADRON [Concomitant]
  3. DILANTIN [Concomitant]
  4. ONDANSETRON [Concomitant]
  5. STEMETIL [Concomitant]
  6. LOVENOX [Concomitant]
  7. TEMOZOLOMIDE [Concomitant]

REACTIONS (3)
  - Convulsion [Unknown]
  - General physical health deterioration [Not Recovered/Not Resolved]
  - Urinary tract infection [Unknown]
